FAERS Safety Report 23824612 (Version 3)
Quarter: 2024Q2

REPORT INFORMATION
  Report Type: Spontaneous
  Country: US (occurrence: US)
  Receive Date: 20240507
  Receipt Date: 20240516
  Transmission Date: 20240716
  Serious: Yes (Hospitalization, Other)
  Sender: FDA-Public Use
  Company Number: US-BRISTOL-MYERS SQUIBB COMPANY-2024-070389

PATIENT
  Age: 85 Year
  Sex: Male

DRUGS (1)
  1. ELIQUIS [Suspect]
     Active Substance: APIXABAN
     Indication: Product used for unknown indication
     Route: 048
     Dates: start: 20240417

REACTIONS (5)
  - Inability to afford medication [Unknown]
  - Therapy interrupted [Unknown]
  - Parkinson^s disease [Unknown]
  - Dementia [Unknown]
  - Syncope [Unknown]

NARRATIVE: CASE EVENT DATE: 20240101
